FAERS Safety Report 8134864-5 (Version None)
Quarter: 2012Q1

REPORT INFORMATION
  Report Type: 
  Country: None (occurrence: None)
  Receive Date: 20120214
  Receipt Date: 20120202
  Transmission Date: 20120608
  Serious: Yes (Other)
  Sender: FDA-Public Use
  Company Number: GB-UCBSA-050997

PATIENT
  Age: 53 Year
  Sex: Female
  Weight: 66 kg

DRUGS (14)
  1. ACETAMINOPHEN AND CODEINE PHOSPHATE [Suspect]
     Dates: start: 20120120
  2. METFORMIN HCL [Concomitant]
     Dates: start: 20110913
  3. BECONASE [Concomitant]
     Dates: start: 20120113
  4. CETIRIZINE [Concomitant]
     Dates: start: 20120118
  5. ALGESAL [Concomitant]
     Dates: start: 20120118
  6. ASPIRIN [Concomitant]
     Dates: start: 20110915
  7. CALCEOS [Concomitant]
     Dates: start: 20120118
  8. BEZAFIBRATE [Concomitant]
     Dates: start: 20111029
  9. ACETAMINOPHEN AND CODEINE PHOSPHATE [Suspect]
     Dates: start: 20080505
  10. ACETAMINOPHEN AND CODEINE PHOSPHATE [Suspect]
     Dates: start: 20111102, end: 20111130
  11. NORTRIPTYLINE HCL [Concomitant]
     Dates: start: 20111102
  12. LATANOPROST [Concomitant]
     Dates: start: 20111102
  13. LISINOPRIL [Concomitant]
     Dates: start: 20110915
  14. PHENOXYMETHYLPENICILLIN [Concomitant]
     Dates: start: 20120113, end: 20120120

REACTIONS (2)
  - CONSTIPATION [None]
  - GASTRITIS [None]
